FAERS Safety Report 10744838 (Version 1)
Quarter: 2015Q1

REPORT INFORMATION
  Report Type: Report from Study
  Country: US (occurrence: US)
  Receive Date: 20150128
  Receipt Date: 20150128
  Transmission Date: 20150721
  Serious: Yes (Hospitalization)
  Sender: FDA-Public Use
  Company Number: US-SA-2014SA019363

PATIENT
  Age: 66 Year
  Sex: Male

DRUGS (4)
  1. AMPYRA [Concomitant]
     Active Substance: DALFAMPRIDINE
     Indication: MULTIPLE SCLEROSIS
     Dates: start: 20121001, end: 20130219
  2. AUBAGIO [Suspect]
     Active Substance: TERIFLUNOMIDE
     Indication: MULTIPLE SCLEROSIS
     Dosage: STRENGTH: 7 MG
     Route: 048
  3. AUBAGIO [Suspect]
     Active Substance: TERIFLUNOMIDE
     Indication: MULTIPLE SCLEROSIS
     Dosage: STRENGTH: 7 MG
     Route: 048
     Dates: start: 20130220
  4. AUBAGIO [Suspect]
     Active Substance: TERIFLUNOMIDE
     Indication: MULTIPLE SCLEROSIS
     Route: 048

REACTIONS (6)
  - Upper limb fracture [Unknown]
  - Infection [Unknown]
  - Fall [Not Recovered/Not Resolved]
  - Drug dose omission [Unknown]
  - Mobility decreased [Not Recovered/Not Resolved]
  - Multiple sclerosis relapse [Unknown]
